FAERS Safety Report 7770286-4 (Version None)
Quarter: 2011Q3

REPORT INFORMATION
  Report Type: 
  Country: None (occurrence: None)
  Receive Date: 20110922
  Receipt Date: 20100824
  Transmission Date: 20111222
  Serious: No
  Sender: FDA-Public Use
  Company Number: US-ASTRAZENECA-2010SE29533

PATIENT
  Age: 55 Year
  Sex: Female
  Weight: 63.5 kg

DRUGS (20)
  1. LIPITOR [Concomitant]
  2. SEROQUEL XR [Suspect]
     Indication: BIPOLAR DISORDER
     Route: 048
     Dates: start: 20060101, end: 20090101
  3. SEROQUEL XR [Suspect]
     Route: 048
     Dates: start: 20090101, end: 20100601
  4. GLUCOMETZA [Concomitant]
     Indication: DIABETES MELLITUS
  5. TOPAMAX [Concomitant]
  6. SEROQUEL XR [Suspect]
     Indication: AFFECTIVE DISORDER
     Route: 048
     Dates: start: 20060101, end: 20090101
  7. SEROQUEL XR [Suspect]
     Route: 048
     Dates: start: 20100601
  8. ATENOLOL [Concomitant]
     Indication: PALPITATIONS
  9. RAMAPIL [Concomitant]
  10. PRISTIQ [Concomitant]
  11. SEROQUEL XR [Suspect]
     Route: 048
     Dates: start: 20100601
  12. DEPAKOTE [Concomitant]
  13. SEROQUEL XR [Suspect]
     Indication: SLEEP DISORDER
     Route: 048
     Dates: start: 20060101, end: 20090101
  14. LANTUS [Concomitant]
     Indication: DIABETES MELLITUS
  15. PROTONIX [Concomitant]
     Indication: GASTROOESOPHAGEAL REFLUX DISEASE
  16. SOLOSTAR [Concomitant]
     Indication: DIABETES MELLITUS
  17. GENUVIA [Concomitant]
  18. SEROQUEL XR [Suspect]
     Route: 048
     Dates: start: 20090101, end: 20100601
  19. SEROQUEL XR [Suspect]
     Route: 048
     Dates: start: 20100601
  20. SEROQUEL XR [Suspect]
     Route: 048
     Dates: start: 20090101, end: 20100601

REACTIONS (6)
  - HYPOTENSION [None]
  - FALL [None]
  - SOMNOLENCE [None]
  - SYNCOPE [None]
  - TREMOR [None]
  - DIZZINESS [None]
